FAERS Safety Report 20291047 (Version 1)
Quarter: 2022Q1

REPORT INFORMATION
  Report Type: Spontaneous
  Country: US (occurrence: None)
  Receive Date: 20220103
  Receipt Date: 20220103
  Transmission Date: 20220424
  Serious: No
  Sender: FDA-Public Use
  Company Number: None

PATIENT
  Age: 24 Year
  Sex: Female
  Weight: 41.4 kg

DRUGS (2)
  1. GABAPENTIN [Suspect]
     Active Substance: GABAPENTIN
     Indication: Anxiety
     Dosage: OTHER QUANTITY : 1 CAPSULE(S);?FREQUENCY : AT BEDTIME;?
     Route: 048
     Dates: start: 20200108, end: 20210512
  2. GABAPENTIN [Suspect]
     Active Substance: GABAPENTIN
     Indication: Insomnia

REACTIONS (2)
  - Photophobia [None]
  - Eye pain [None]

NARRATIVE: CASE EVENT DATE: 20210220
